FAERS Safety Report 11071507 (Version 3)
Quarter: 2015Q4

REPORT INFORMATION
  Report Type: Spontaneous
  Country: US (occurrence: US)
  Receive Date: 20150428
  Receipt Date: 20151019
  Transmission Date: 20160304
  Serious: No
  Sender: FDA-Public Use
  Company Number: US-PFIZER INC-2015121705

PATIENT
  Age: 52 Year
  Sex: Male
  Weight: 65 kg

DRUGS (4)
  1. SUTENT [Suspect]
     Active Substance: SUNITINIB MALATE
     Dosage: 12.5 MG, UNK
  2. PANTOPRAZOLE [Concomitant]
     Active Substance: PANTOPRAZOLE SODIUM
     Dosage: UNK
  3. ENALAPRIL [Concomitant]
     Active Substance: ENALAPRIL
     Dosage: UNK
  4. SUTENT [Suspect]
     Active Substance: SUNITINIB MALATE
     Indication: RENAL CANCER STAGE IV
     Dosage: 50 MG, CYCLIC (DAILY FOR 28 DAYS, 14 DAYS OFF)
     Dates: start: 20150304

REACTIONS (7)
  - Rash [Unknown]
  - Decreased appetite [Unknown]
  - Dysgeusia [Unknown]
  - Pain in extremity [Unknown]
  - Nausea [Unknown]
  - Pruritus [Unknown]
  - Chapped lips [Unknown]

NARRATIVE: CASE EVENT DATE: 2015
